FAERS Safety Report 9980927 (Version 1)
Quarter: 2014Q1

REPORT INFORMATION
  Report Type: Spontaneous
  Country: GB (occurrence: None)
  Receive Date: 20140305
  Receipt Date: 20140305
  Transmission Date: 20141002
  Serious: Yes (Disabling)
  Sender: FDA-Public Use
  Company Number: AUR-APL-2014-02150

PATIENT
  Age: 67 Year
  Sex: Male
  Weight: 93.89 kg

DRUGS (3)
  1. SIMVASTATIN (SIMVASTATIN) [Suspect]
     Indication: PRODUCT USED FOR UNKNOWN INDICATION
     Dates: start: 20131113
  2. ATORVASTATIN [Concomitant]
  3. LEVOTHYROXINE [Concomitant]

REACTIONS (1)
  - Abdominal distension [None]
